FAERS Safety Report 10583067 (Version 1)
Quarter: 2014Q4

REPORT INFORMATION
  Report Type: Spontaneous
  Country: US (occurrence: US)
  Receive Date: 20141114
  Receipt Date: 20141114
  Transmission Date: 20150529
  Serious: No
  Sender: FDA-Public Use
  Company Number: US-TEVA-519362USA

PATIENT
  Sex: Female

DRUGS (1)
  1. ESZOPICLONE. [Suspect]
     Active Substance: ESZOPICLONE
     Indication: INSOMNIA
     Dosage: 3 MILLIGRAM DAILY; AT NIGHT
     Route: 048
     Dates: start: 20141009

REACTIONS (1)
  - Drug ineffective [Unknown]
